FAERS Safety Report 16342411 (Version 1)
Quarter: 2019Q2

REPORT INFORMATION
  Report Type: Spontaneous
  Country: US (occurrence: US)
  Receive Date: 20190416
  Receipt Date: 20190416
  Transmission Date: 20190711
  Serious: No
  Sender: FDA-Public Use
  Company Number: None

PATIENT
  Age: 60 Year
  Sex: Female

DRUGS (17)
  1. VITAMIN D3 [Concomitant]
     Active Substance: CHOLECALCIFEROL
  2. OCALIVA [Suspect]
     Active Substance: OBETICHOLIC ACID
     Indication: PRIMARY BILIARY CHOLANGITIS
     Route: 048
     Dates: start: 20170228
  3. GLUCOSAMINE [Concomitant]
     Active Substance: GLUCOSAMINE
  4. NAMENDA [Concomitant]
     Active Substance: MEMANTINE HYDROCHLORIDE
  5. FOLBEE PLUS [Concomitant]
  6. L-ARGININE [Concomitant]
     Active Substance: ARGININE
  7. VITAMIN A [Concomitant]
     Active Substance: VITAMIN A
  8. CALCIUM D [Concomitant]
     Active Substance: CALCIUM\VITAMIN D
  9. GABAPENTIN. [Concomitant]
     Active Substance: GABAPENTIN
  10. PRAVASTATIN. [Concomitant]
     Active Substance: PRAVASTATIN
  11. PRESERVISION CAP AREDS [Concomitant]
  12. COQ10 [Concomitant]
     Active Substance: UBIDECARENONE
  13. COUMADIN [Concomitant]
     Active Substance: WARFARIN SODIUM
  14. PANTOPRAZOLE [Concomitant]
     Active Substance: PANTOPRAZOLE
  15. PLAVIX [Concomitant]
     Active Substance: CLOPIDOGREL BISULFATE
  16. ZETIA [Concomitant]
     Active Substance: EZETIMIBE
  17. URSODIOL. [Concomitant]
     Active Substance: URSODIOL

REACTIONS (1)
  - Pruritus [None]
